FAERS Safety Report 23881167 (Version 1)
Quarter: 2024Q2

REPORT INFORMATION
  Report Type: Spontaneous
  Country: GB (occurrence: GB)
  Receive Date: 20240521
  Receipt Date: 20240521
  Transmission Date: 20240716
  Serious: Yes (Death, Life-Threatening, Hospitalization, Other)
  Sender: FDA-Public Use
  Company Number: GB-SUN PHARMACEUTICAL INDUSTRIES LTD-2024R1-447083

PATIENT
  Age: 61 Year
  Sex: Male

DRUGS (3)
  1. AMPHOTERICIN B [Suspect]
     Active Substance: AMPHOTERICIN B
     Indication: Pneumocystis jirovecii infection
     Dosage: 5 MILLIGRAM/KILOGRAM, DAILY
     Route: 065
  2. ISAVUCONAZOLE [Suspect]
     Active Substance: ISAVUCONAZOLE
     Indication: Pneumocystis jirovecii infection
     Dosage: 200 MILLIGRAM, TID
     Route: 042
  3. ISAVUCONAZOLE [Suspect]
     Active Substance: ISAVUCONAZOLE
     Dosage: 200 MILLIGRAM, DAILY
     Route: 042

REACTIONS (6)
  - Condition aggravated [Fatal]
  - Disease progression [Unknown]
  - Acute kidney injury [Unknown]
  - Respiratory failure [Unknown]
  - Rash maculo-papular [Unknown]
  - Retinal disorder [Unknown]
